FAERS Safety Report 6098263-2 (Version None)
Quarter: 2009Q1

REPORT INFORMATION
  Report Type: 
  Country: None (occurrence: None)
  Receive Date: 20090227
  Receipt Date: 20090220
  Transmission Date: 20090719
  Serious: Yes (Life-Threatening)
  Sender: FDA-Public Use
  Company Number: JP-MERCK-0901USA04435

PATIENT
  Age: 63 Year
  Sex: Female

DRUGS (8)
  1. PEPCID [Suspect]
     Indication: GASTRIC ULCER
     Route: 042
     Dates: start: 20090114, end: 20090115
  2. CEFMETAZOLE SODIUM [Concomitant]
     Route: 042
     Dates: start: 20090114, end: 20090115
  3. SOLDEM 3A [Concomitant]
     Route: 065
  4. NIFLEC [Concomitant]
     Route: 065
     Dates: start: 20090113
  5. CIMETIDINE [Concomitant]
     Route: 048
  6. FENTANYL CITRATE [Suspect]
     Indication: EPIDURAL ANAESTHESIA
     Route: 065
     Dates: start: 20090114, end: 20090116
  7. LEVOBUPIVACAINE HYDROCHLORIDE [Suspect]
     Route: 065
     Dates: start: 20090114, end: 20090116
  8. SEVOFLURANE [Concomitant]
     Route: 065
     Dates: start: 20090114

REACTIONS (1)
  - CARDIO-RESPIRATORY ARREST [None]
